FAERS Safety Report 16437919 (Version 1)
Quarter: 2019Q2

REPORT INFORMATION
  Report Type: Spontaneous
  Country: US (occurrence: US)
  Receive Date: 20190617
  Receipt Date: 20190617
  Transmission Date: 20190711
  Serious: No
  Sender: FDA-Public Use
  Company Number: US-TEVA-2019-US-1060745

PATIENT
  Sex: Female

DRUGS (1)
  1. METFORMIN HYDROCHLORIDE EXTENDED RELEASE TABLET TEVA [Suspect]
     Active Substance: METFORMIN HYDROCHLORIDE
     Indication: BLOOD GLUCOSE ABNORMAL
     Dosage: 2 DOSAGE FORMS DAILY; 1 DOSAGE FORM= 500 MG
     Route: 065

REACTIONS (5)
  - Weight increased [Unknown]
  - Joint swelling [Unknown]
  - Blood glucose increased [Unknown]
  - Drug ineffective [Unknown]
  - Arthralgia [Unknown]
